FAERS Safety Report 19659144 (Version 1)
Quarter: 2021Q3

REPORT INFORMATION
  Report Type: Spontaneous
  Country: RU (occurrence: RU)
  Receive Date: 20210805
  Receipt Date: 20210805
  Transmission Date: 20211014
  Serious: Yes (Other)
  Sender: FDA-Public Use
  Company Number: RU-CIPLA LTD.-2021RU05149

PATIENT

DRUGS (8)
  1. EPIVIR [Suspect]
     Active Substance: LAMIVUDINE
     Indication: HIV INFECTION
     Dosage: 300 MG/DAY, COURSE 1 (FIRST TRIMESTER)
     Route: 048
  2. HEPITEC [Suspect]
     Active Substance: LAMIVUDINE
     Indication: HIV INFECTION
     Dosage: 300 MG/DAY, COURSE 1 (FIRST TRIMESTER)
     Route: 048
  3. ZEFFIX [Suspect]
     Active Substance: LAMIVUDINE
     Indication: HIV INFECTION
     Dosage: 300 MG/DAY, COURSE 1 (FIRST TRIMESTER)
     Route: 048
  4. 3TC [Suspect]
     Active Substance: LAMIVUDINE
     Indication: HIV INFECTION
     Dosage: 300 MG/DAY, COURSE 1 (FIRST TRIMESTER)
     Route: 048
  5. HEPTODIN [Suspect]
     Active Substance: LAMIVUDINE
     Indication: HIV INFECTION
     Dosage: 300 MG/DAY, COURSE 1 (FIRST TRIMESTER)
     Route: 048
     Dates: start: 20190909
  6. TENOFOVIR [Suspect]
     Active Substance: TENOFOVIR
     Indication: HIV INFECTION
     Dosage: 300 MG/DAY
     Route: 048
     Dates: start: 20190909
  7. TIVICAY [Suspect]
     Active Substance: DOLUTEGRAVIR SODIUM
     Indication: HIV INFECTION
     Dosage: 50 MG/DAY, COURSE 1 (FIRST TRIMESTER)
     Route: 048
     Dates: start: 20200717, end: 20210525
  8. HEPTOVIR [Suspect]
     Active Substance: LAMIVUDINE
     Indication: HIV INFECTION
     Dosage: 300 MG/DAY, COURSE 1 (FIRST TRIMESTER)
     Route: 048

REACTIONS (2)
  - Abortion spontaneous [Unknown]
  - Exposure during pregnancy [Unknown]

NARRATIVE: CASE EVENT DATE: 2021
